FAERS Safety Report 14312758 (Version 2)
Quarter: 2018Q2

REPORT INFORMATION
  Report Type: Spontaneous
  Country: DE (occurrence: DE)
  Receive Date: 20171221
  Receipt Date: 20180523
  Transmission Date: 20180711
  Serious: Yes (Other)
  Sender: FDA-Public Use
  Company Number: PHHY2017DE189275

PATIENT
  Sex: Female
  Weight: 48 kg

DRUGS (7)
  1. NOVAMIN [Concomitant]
     Indication: BACK PAIN
  2. NOVAMIN [Concomitant]
     Indication: HYPOTHYROIDISM
     Dosage: 30 ML, QD
     Route: 048
     Dates: start: 20170301
  3. TRAMADOL. [Concomitant]
     Active Substance: TRAMADOL
     Indication: HYPOTHYROIDISM
     Dosage: 100 MG, BID
     Route: 048
     Dates: start: 20170301
  4. VOTRIENT [Suspect]
     Active Substance: PAZOPANIB HYDROCHLORIDE
     Indication: METASTATIC RENAL CELL CARCINOMA
     Dosage: 600 MG, QD
     Route: 048
     Dates: start: 20170724, end: 20171010
  5. L-THYROXIN HENNING [Concomitant]
     Active Substance: LEVOTHYROXINE SODIUM
     Indication: HYPOTHYROIDISM
     Dosage: 100 MG, QD
     Route: 048
     Dates: start: 19860101
  6. TRAMADOL. [Concomitant]
     Active Substance: TRAMADOL
     Indication: BACK PAIN
  7. VOTRIENT [Suspect]
     Active Substance: PAZOPANIB HYDROCHLORIDE
     Dosage: 400 MG, QD
     Route: 048
     Dates: start: 20171011

REACTIONS (7)
  - Diarrhoea [Not Recovered/Not Resolved]
  - Alopecia [Not Recovered/Not Resolved]
  - Hypertension [Not Recovered/Not Resolved]
  - Palmar-plantar erythrodysaesthesia syndrome [Not Recovered/Not Resolved]
  - Stomatitis [Recovered/Resolved]
  - Hair colour changes [Not Recovered/Not Resolved]
  - Ageusia [Not Recovered/Not Resolved]

NARRATIVE: CASE EVENT DATE: 20170728
